FAERS Safety Report 9513459 (Version 2)
Quarter: 2013Q3

REPORT INFORMATION
  Report Type: Spontaneous
  Country: US (occurrence: US)
  Receive Date: 20130910
  Receipt Date: 20130910
  Transmission Date: 20140515
  Serious: Yes (Hospitalization, Other)
  Sender: FDA-Public Use
  Company Number: US-TARO-2013P1002923

PATIENT
  Age: 67 Year
  Sex: Male
  Weight: 115 kg

DRUGS (2)
  1. WARFARIN SODIUM TABLETS USP 5MG [Suspect]
     Indication: ATRIAL FIBRILLATION
     Route: 048
     Dates: start: 20130204, end: 20130210
  2. UNSPECIFIED MEDICATIONS [Concomitant]

REACTIONS (2)
  - Epistaxis [Not Recovered/Not Resolved]
  - International normalised ratio increased [Unknown]
